FAERS Safety Report 16071141 (Version 2)
Quarter: 2019Q2

REPORT INFORMATION
  Report Type: Spontaneous
  Country: US (occurrence: US)
  Receive Date: 20190314
  Receipt Date: 20190528
  Transmission Date: 20190711
  Serious: No
  Sender: FDA-Public Use
  Company Number: US-PFIZER INC-2019101499

PATIENT
  Age: 61 Year
  Sex: Male
  Weight: 165.5 kg

DRUGS (1)
  1. LYRICA [Suspect]
     Active Substance: PREGABALIN
     Indication: BACK PAIN
     Dosage: 200 MG, 3X/DAY
     Route: 048

REACTIONS (4)
  - Feeling abnormal [Unknown]
  - Dehydration [Unknown]
  - Pain [Unknown]
  - Withdrawal syndrome [Unknown]
